FAERS Safety Report 9118002 (Version 1)
Quarter: 2013Q1

REPORT INFORMATION
  Report Type: Spontaneous
  Country: GB (occurrence: GB)
  Receive Date: 20130226
  Receipt Date: 20130226
  Transmission Date: 20140127
  Serious: Yes (Disabling, Other)
  Sender: FDA-Public Use
  Company Number: PHFR2002GB04049

PATIENT
  Age: 22 Year
  Sex: Male

DRUGS (2)
  1. CLOZARIL [Suspect]
     Indication: SCHIZOPHRENIA
     Dosage: 400 MG, UNK
     Route: 048
     Dates: start: 20020916
  2. CLOZARIL [Suspect]
     Dosage: UNK UKN, UNK

REACTIONS (5)
  - Myoclonus [Recovering/Resolving]
  - Muscle twitching [Recovering/Resolving]
  - Sedation [Recovering/Resolving]
  - Drug level increased [Recovering/Resolving]
  - Drug ineffective [Unknown]
